FAERS Safety Report 19305766 (Version 31)
Quarter: 2023Q4

REPORT INFORMATION
  Report Type: Spontaneous
  Country: CA (occurrence: CA)
  Receive Date: 20210526
  Receipt Date: 20231213
  Transmission Date: 20240110
  Serious: Yes (Hospitalization, Other)
  Sender: FDA-Public Use
  Company Number: CA-CELLTRION INC.-2020CA021889

PATIENT

DRUGS (36)
  1. INFLECTRA [Suspect]
     Active Substance: INFLIXIMAB-DYYB
     Indication: Crohn^s disease
     Dosage: 5 MG/KG, 0, 2, 6 THEN EVERY 8 WEEKS
     Route: 042
     Dates: start: 20200402
  2. INFLECTRA [Suspect]
     Active Substance: INFLIXIMAB-DYYB
     Dosage: 5 MG/KG, 0, 2, 6 THEN EVERY 8 WEEKS
     Route: 042
     Dates: start: 20200402
  3. INFLECTRA [Suspect]
     Active Substance: INFLIXIMAB-DYYB
     Dosage: 5 MG/KG, 0, 2, 6 THEN EVERY 8 WEEKS
     Route: 042
     Dates: start: 20200402, end: 20211125
  4. INFLECTRA [Suspect]
     Active Substance: INFLIXIMAB-DYYB
     Dosage: 5 MG/KG, 0, 2, 6 THEN EVERY 8 WEEKS
     Route: 042
     Dates: start: 20200516
  5. INFLECTRA [Suspect]
     Active Substance: INFLIXIMAB-DYYB
     Dosage: 5 MG/KG, 0, 2, 6 THEN EVERY 8 WEEKS
     Route: 042
     Dates: start: 20201030
  6. INFLECTRA [Suspect]
     Active Substance: INFLIXIMAB-DYYB
     Dosage: 5 MG/KG, 0, 2, 6 THEN EVERY 8 WEEKS
     Route: 042
     Dates: start: 20201224
  7. INFLECTRA [Suspect]
     Active Substance: INFLIXIMAB-DYYB
     Dosage: 5 MG/KG, 0, 2, 6 THEN EVERY 8 WEEKS
     Route: 042
     Dates: start: 20210415
  8. INFLECTRA [Suspect]
     Active Substance: INFLIXIMAB-DYYB
     Dosage: 5 MG/KG, 0, 2, 6 THEN EVERY 8 WEEKS
     Route: 042
     Dates: start: 20210609
  9. INFLECTRA [Suspect]
     Active Substance: INFLIXIMAB-DYYB
     Dosage: 5 MG/KG, 0, 2, 6 THEN EVERY 8 WEEKS
     Route: 042
     Dates: start: 20210805
  10. INFLECTRA [Suspect]
     Active Substance: INFLIXIMAB-DYYB
     Dosage: 5 MG/KG, 0, 2, 6 THEN EVERY 8 WEEKS
     Route: 042
     Dates: start: 20210930
  11. INFLECTRA [Suspect]
     Active Substance: INFLIXIMAB-DYYB
     Dosage: 5 MG/KG, 0, 2, 6 THEN EVERY 8 WEEKS
     Route: 042
     Dates: start: 20211125
  12. INFLECTRA [Suspect]
     Active Substance: INFLIXIMAB-DYYB
     Dosage: 5 MG/KG, 0, 2, 6 THEN EVERY 8 WEEKS
     Route: 042
     Dates: start: 20220110
  13. INFLECTRA [Suspect]
     Active Substance: INFLIXIMAB-DYYB
     Dosage: 5 MG/KG EVERY 4 WEEKS
     Route: 042
     Dates: start: 20220110
  14. INFLECTRA [Suspect]
     Active Substance: INFLIXIMAB-DYYB
     Dosage: 5 MG/KG, 0, 2, 6 THEN EVERY 8 WEEKS
     Route: 042
     Dates: start: 20220210
  15. INFLECTRA [Suspect]
     Active Substance: INFLIXIMAB-DYYB
     Dosage: 5 MG/KG, 0, 2, 6 THEN EVERY 8 WEEKS
     Route: 042
     Dates: start: 20220309
  16. INFLECTRA [Suspect]
     Active Substance: INFLIXIMAB-DYYB
     Dosage: 5 MG/KG, 0, 2, 6 THEN EVERY 8 WEEKS
     Route: 042
     Dates: start: 20220419
  17. INFLECTRA [Suspect]
     Active Substance: INFLIXIMAB-DYYB
     Dosage: 5 MG/KG, 0, 2, 6 THEN EVERY 8 WEEKS
     Route: 042
     Dates: start: 20220519
  18. INFLECTRA [Suspect]
     Active Substance: INFLIXIMAB-DYYB
     Dosage: 5 MG/KG EVERY 4 WEEKS
     Route: 042
     Dates: start: 20220616
  19. INFLECTRA [Suspect]
     Active Substance: INFLIXIMAB-DYYB
     Dosage: 5 MG/KG EVERY 4 WEEKS
     Route: 042
     Dates: start: 20220811
  20. INFLECTRA [Suspect]
     Active Substance: INFLIXIMAB-DYYB
     Dosage: 5 MG/KG EVERY 4 WEEKS
     Route: 042
     Dates: start: 20220908
  21. INFLECTRA [Suspect]
     Active Substance: INFLIXIMAB-DYYB
     Dosage: 5 MG/KG EVERY 4 WEEKS
     Route: 042
     Dates: start: 20221005
  22. INFLECTRA [Suspect]
     Active Substance: INFLIXIMAB-DYYB
     Dosage: 5 MG/KG EVERY 4 WEEKS
     Route: 042
     Dates: start: 20221102
  23. INFLECTRA [Suspect]
     Active Substance: INFLIXIMAB-DYYB
     Dosage: 5 MG/KG EVERY 4 WEEKS
     Route: 042
     Dates: start: 20221130
  24. INFLECTRA [Suspect]
     Active Substance: INFLIXIMAB-DYYB
     Dosage: 5 MG/KG EVERY 4 WEEKS
     Route: 042
     Dates: start: 20221229
  25. INFLECTRA [Suspect]
     Active Substance: INFLIXIMAB-DYYB
     Dosage: 370MG (5MG/KG), 4 WEEKS
     Route: 042
     Dates: start: 20230126
  26. INFLECTRA [Suspect]
     Active Substance: INFLIXIMAB-DYYB
     Dosage: 370MG (5MG/KG), 4 WEEKS
     Route: 042
     Dates: start: 20230224
  27. INFLECTRA [Suspect]
     Active Substance: INFLIXIMAB-DYYB
     Dosage: 365 MG (5MG/KG), 4 WEEKS
     Route: 042
     Dates: start: 20230327
  28. INFLECTRA [Suspect]
     Active Substance: INFLIXIMAB-DYYB
     Dosage: 370 MG (5MG/KG), EVERY 4 WEEKS
     Route: 042
     Dates: start: 20230421
  29. INFLECTRA [Suspect]
     Active Substance: INFLIXIMAB-DYYB
     Dosage: 365 MG (5MG/KG), EVERY 4 WEEKS
     Route: 042
     Dates: start: 20230517
  30. INFLECTRA [Suspect]
     Active Substance: INFLIXIMAB-DYYB
     Dosage: 5MG/KG, EVERY 4 WEEKS
     Route: 042
     Dates: start: 20230614
  31. INFLECTRA [Suspect]
     Active Substance: INFLIXIMAB-DYYB
     Dosage: 5MG/KG (360 MG), EVERY 4 WEEKS
     Route: 042
     Dates: start: 20230712
  32. INFLECTRA [Suspect]
     Active Substance: INFLIXIMAB-DYYB
     Dosage: 360 MG, 4 WEEKS
     Route: 042
     Dates: start: 20230809
  33. INFLECTRA [Suspect]
     Active Substance: INFLIXIMAB-DYYB
     Dosage: 360 MG, 4 WEEKS
     Route: 042
     Dates: start: 20230906
  34. INFLECTRA [Suspect]
     Active Substance: INFLIXIMAB-DYYB
     Dosage: 365MG, 5MG/KG EVERY 4 WEEKS
     Route: 042
     Dates: start: 20231004
  35. INFLECTRA [Suspect]
     Active Substance: INFLIXIMAB-DYYB
     Dosage: 360 MG (5MG/KG), 4 WEEKS
     Route: 042
     Dates: start: 20231101
  36. INFLECTRA [Suspect]
     Active Substance: INFLIXIMAB-DYYB
     Dosage: 5 MG/KG, EVERY 4 WEEKS (360 MG 4 WEEKS)
     Route: 042
     Dates: start: 20231129

REACTIONS (23)
  - Condition aggravated [Recovering/Resolving]
  - Diabetes mellitus [Not Recovered/Not Resolved]
  - Gastrointestinal erosion [Unknown]
  - Therapeutic product effect incomplete [Unknown]
  - Arthralgia [Not Recovered/Not Resolved]
  - Vomiting [Unknown]
  - Malaise [Unknown]
  - Nausea [Unknown]
  - Infusion site oedema [Recovering/Resolving]
  - Abdominal distension [Unknown]
  - Rhinorrhoea [Not Recovered/Not Resolved]
  - Nasal congestion [Not Recovered/Not Resolved]
  - Secretion discharge [Not Recovered/Not Resolved]
  - Enteritis [Unknown]
  - Aphthous ulcer [Recovered/Resolved]
  - Influenza [Not Recovered/Not Resolved]
  - Nasopharyngitis [Recovered/Resolved]
  - Oropharyngeal pain [Recovered/Resolved]
  - Anal fissure [Recovered/Resolved]
  - Aphthous ulcer [Not Recovered/Not Resolved]
  - Off label use [Unknown]
  - Off label use [Unknown]
  - Intentional product use issue [Unknown]

NARRATIVE: CASE EVENT DATE: 20200101
